FAERS Safety Report 20471233 (Version 1)
Quarter: 2022Q1

REPORT INFORMATION
  Report Type: Report from Study
  Country: US (occurrence: US)
  Receive Date: 20220214
  Receipt Date: 20220214
  Transmission Date: 20220424
  Serious: No
  Sender: FDA-Public Use
  Company Number: US-TG THERAPEUTICS INC.-TGT002270

PATIENT
  Age: 81 Year
  Sex: Female

DRUGS (2)
  1. UMBRALISIB [Suspect]
     Active Substance: UMBRALISIB
     Indication: Marginal zone lymphoma
     Dosage: 800 MILLIGRAM, QD
     Route: 048
  2. UMBRALISIB [Suspect]
     Active Substance: UMBRALISIB
     Dosage: 600 MILLIGRAM
     Route: 048

REACTIONS (7)
  - Neck mass [Unknown]
  - Headache [Unknown]
  - Illness [Unknown]
  - Asthenia [Unknown]
  - Nausea [Not Recovered/Not Resolved]
  - Fatigue [Not Recovered/Not Resolved]
  - Upper respiratory tract infection [Unknown]

NARRATIVE: CASE EVENT DATE: 20220106
